FAERS Safety Report 22059783 (Version 2)
Quarter: 2023Q2

REPORT INFORMATION
  Report Type: Report from Study
  Country: US (occurrence: US)
  Receive Date: 20230303
  Receipt Date: 20230502
  Transmission Date: 20230721
  Serious: Yes (Hospitalization, Other)
  Sender: FDA-Public Use
  Company Number: US-ABBVIE-4325139

PATIENT
  Age: 68 Year
  Sex: Male
  Weight: 58.966 kg

DRUGS (2)
  1. DUOPA [Suspect]
     Active Substance: CARBIDOPA\LEVODOPA
     Indication: Parkinson^s disease
     Route: 050
     Dates: start: 2021
  2. DUOPA [Suspect]
     Active Substance: CARBIDOPA\LEVODOPA

REACTIONS (7)
  - Urinary tract infection [Recovered/Resolved]
  - Device leakage [Not Recovered/Not Resolved]
  - Stoma site pain [Recovered/Resolved]
  - Stoma site discharge [Recovered/Resolved]
  - Unevaluable event [Unknown]
  - Sepsis [Recovered/Resolved]
  - Hallucination [Recovering/Resolving]

NARRATIVE: CASE EVENT DATE: 20221101
